FAERS Safety Report 9066700 (Version 1)
Quarter: 2013Q1

REPORT INFORMATION
  Report Type: Report from Study
  Country: US (occurrence: US)
  Receive Date: 20130131
  Receipt Date: 20130131
  Transmission Date: 20140127
  Serious: No
  Sender: FDA-Public Use
  Company Number: US-ABBOTT-12P-163-1016010-00

PATIENT
  Sex: Female
  Weight: 61.29 kg

DRUGS (5)
  1. HUMIRA [Suspect]
     Indication: PSORIATIC ARTHROPATHY
     Dates: start: 20120920
  2. HUMIRA [Suspect]
     Indication: PSORIASIS
  3. METHOTREXATE [Suspect]
     Indication: PSORIATIC ARTHROPATHY
  4. CLOBETASOL [Concomitant]
     Indication: PSORIASIS
  5. IRON [Concomitant]
     Indication: ANAEMIA

REACTIONS (3)
  - Fatigue [Recovering/Resolving]
  - Somnolence [Recovering/Resolving]
  - Psoriasis [Not Recovered/Not Resolved]
